FAERS Safety Report 20923702 (Version 1)
Quarter: 2022Q2

REPORT INFORMATION
  Report Type: Report from Study
  Country: IN (occurrence: IN)
  Receive Date: 20220607
  Receipt Date: 20220607
  Transmission Date: 20220721
  Serious: Yes (Hospitalization, Other)
  Sender: FDA-Public Use
  Company Number: IN-Accord-265405

PATIENT
  Age: 45 Year
  Sex: Female

DRUGS (4)
  1. FLUOROURACIL [Suspect]
     Active Substance: FLUOROURACIL
     Indication: Adenocarcinoma metastatic
     Dosage: HIGH-DOSE, (2600 MG/M2/DAY)
  2. DOCETAXEL [Concomitant]
     Active Substance: DOCETAXEL
     Indication: Adenocarcinoma metastatic
  3. OXALIPLATIN [Concomitant]
     Active Substance: OXALIPLATIN
     Indication: Adenocarcinoma metastatic
  4. LEUCOVORIN [Concomitant]
     Active Substance: LEUCOVORIN
     Indication: Adenocarcinoma metastatic

REACTIONS (1)
  - Leukoencephalopathy [Recovered/Resolved]
